FAERS Safety Report 13033222 (Version 1)
Quarter: 2016Q4

REPORT INFORMATION
  Report Type: Spontaneous
  Country: PL (occurrence: PL)
  Receive Date: 20161216
  Receipt Date: 20161216
  Transmission Date: 20170207
  Serious: Yes (Death, Other)
  Sender: FDA-Public Use
  Company Number: PL-CIPLA LTD.-2016PL23298

PATIENT

DRUGS (3)
  1. PACLITAXEL. [Suspect]
     Active Substance: PACLITAXEL
     Indication: NEOPLASM MALIGNANT
     Dosage: UNK,  4 CYCLES
     Route: 065
     Dates: start: 2012
  2. GEMCITABINE [Suspect]
     Active Substance: GEMCITABINE\GEMCITABINE HYDROCHLORIDE
     Indication: NEOPLASM MALIGNANT
     Dosage: UNK, THREE CYCLES
     Route: 065
     Dates: start: 2015
  3. CARBOPLATIN. [Suspect]
     Active Substance: CARBOPLATIN
     Indication: NEOPLASM MALIGNANT
     Dosage: UNK, 4 CYCLES
     Route: 065
     Dates: start: 2012

REACTIONS (2)
  - Disease progression [Fatal]
  - Disease recurrence [Unknown]

NARRATIVE: CASE EVENT DATE: 2016
